FAERS Safety Report 14511133 (Version 2)
Quarter: 2018Q1

REPORT INFORMATION
  Report Type: Report from Study
  Country: BR (occurrence: BR)
  Receive Date: 20180209
  Receipt Date: 20180321
  Transmission Date: 20180509
  Serious: Yes (Hospitalization, Other)
  Sender: FDA-Public Use
  Company Number: BR-ALEXION PHARMACEUTICALS INC.-A201714687

PATIENT
  Age: 36 Year
  Sex: Male

DRUGS (2)
  1. SOLIRIS [Suspect]
     Active Substance: ECULIZUMAB
     Indication: PAROXYSMAL NOCTURNAL HAEMOGLOBINURIA
     Dosage: 600 MG, QW
     Route: 042
     Dates: start: 20160520, end: 20160610
  2. SOLIRIS [Suspect]
     Active Substance: ECULIZUMAB
     Dosage: 900 MG, Q2W
     Route: 042
     Dates: start: 20160620

REACTIONS (7)
  - Haematuria [Unknown]
  - Abdominal pain [Recovered/Resolved]
  - Haemolysis [Unknown]
  - Urinary tract infection [Unknown]
  - Asthenia [Unknown]
  - Haemoglobin decreased [Unknown]
  - Pain [Unknown]

NARRATIVE: CASE EVENT DATE: 20180111
